FAERS Safety Report 11965465 (Version 1)
Quarter: 2016Q1

REPORT INFORMATION
  Report Type: Spontaneous
  Country: US (occurrence: None)
  Receive Date: 20160122
  Receipt Date: 20160122
  Transmission Date: 20160526
  Serious: Yes (Other)
  Sender: FDA-Public Use
  Company Number: None

PATIENT
  Age: 31 Year
  Sex: Male

DRUGS (12)
  1. TRAZODONE HYDROCHLORIDE. [Concomitant]
     Active Substance: TRAZODONE HYDROCHLORIDE
  2. FAMOTIDINE. [Concomitant]
     Active Substance: FAMOTIDINE
  3. ALLOPURINOL. [Concomitant]
     Active Substance: ALLOPURINOL
  4. BENZTROPINE [Concomitant]
     Active Substance: BENZTROPINE
  5. VITAMIN D [Concomitant]
     Active Substance: CHOLECALCIFEROL
  6. MESYLATE [Concomitant]
  7. LORATADINE. [Concomitant]
     Active Substance: LORATADINE
  8. ZOCOR [Suspect]
     Active Substance: SIMVASTATIN
     Indication: BLOOD CHOLESTEROL
     Dosage: 1 PILL, ONCE AT BEDTIME, BY MOUTH
     Dates: start: 20151201, end: 20160101
  9. ASPIRIN. [Concomitant]
     Active Substance: ASPIRIN
  10. RISPERIDONE. [Concomitant]
     Active Substance: RISPERIDONE
  11. MOMETASONE FUROATE. [Concomitant]
     Active Substance: MOMETASONE FUROATE
  12. METHYLPREDNISOLONE. [Concomitant]
     Active Substance: METHYLPREDNISOLONE

REACTIONS (6)
  - Headache [None]
  - Muscular weakness [None]
  - Arthralgia [None]
  - Chest pain [None]
  - Hypersensitivity [None]
  - Back pain [None]

NARRATIVE: CASE EVENT DATE: 20160104
